FAERS Safety Report 11226294 (Version 3)
Quarter: 2015Q3

REPORT INFORMATION
  Report Type: Spontaneous
  Country: NL (occurrence: NL)
  Receive Date: 20150629
  Receipt Date: 20150903
  Transmission Date: 20151125
  Serious: Yes (Other)
  Sender: FDA-Public Use
  Company Number: NL-BAXALTA-2015BAX033624

PATIENT
  Age: 77 Year
  Sex: Female

DRUGS (5)
  1. SUBCUVIA [Suspect]
     Active Substance: HUMAN IMMUNOGLOBULIN G
     Indication: CHRONIC OBSTRUCTIVE PULMONARY DISEASE
     Dosage: 20 ML, 1X A WEEK
     Route: 058
     Dates: start: 20150519
  2. GAMMAQUIN [Suspect]
     Active Substance: HUMAN IMMUNOGLOBULIN G
     Indication: CHRONIC OBSTRUCTIVE PULMONARY DISEASE
     Dosage: 15 ML, 1X A WEEK
     Route: 058
     Dates: start: 2012, end: 20150512
  3. INSULIN [Concomitant]
     Active Substance: INSULIN NOS
     Indication: DIABETES MELLITUS
     Route: 065
  4. SUBCUVIA [Suspect]
     Active Substance: HUMAN IMMUNOGLOBULIN G
     Indication: OFF LABEL USE
  5. GAMMAQUIN [Suspect]
     Active Substance: HUMAN IMMUNOGLOBULIN G
     Dosage: 5 ML, 1X A WEEK
     Route: 058
     Dates: start: 2012, end: 20150512

REACTIONS (2)
  - Cardiac asthma [Recovered/Resolved]
  - Chronic obstructive pulmonary disease [Unknown]

NARRATIVE: CASE EVENT DATE: 20150607
